FAERS Safety Report 13641866 (Version 2)
Quarter: 2019Q2

REPORT INFORMATION
  Report Type: Spontaneous
  Country: US (occurrence: US)
  Receive Date: 20170612
  Receipt Date: 20190430
  Transmission Date: 20190711
  Serious: No
  Sender: FDA-Public Use
  Company Number: US-PFIZER INC-2017254271

PATIENT
  Age: 61 Year
  Sex: Male

DRUGS (1)
  1. DOXYCYCLINE HYCLATE. [Suspect]
     Active Substance: DOXYCYCLINE HYCLATE
     Dosage: UNK

REACTIONS (1)
  - Drug hypersensitivity [Unknown]
